FAERS Safety Report 8212485-3 (Version None)
Quarter: 2012Q1

REPORT INFORMATION
  Report Type: 
  Country: None (occurrence: None)
  Receive Date: 20120315
  Receipt Date: 20120308
  Transmission Date: 20120608
  Serious: Yes (Hospitalization)
  Sender: FDA-Public Use
  Company Number: US-GLAXOSMITHKLINE-A0967167A

PATIENT
  Age: 89 Year
  Sex: Male

DRUGS (5)
  1. SPIRIVA [Concomitant]
  2. ALBUTEROL [Concomitant]
  3. ADVAIR DISKUS 100/50 [Suspect]
     Indication: CHRONIC OBSTRUCTIVE PULMONARY DISEASE
     Dosage: 1PUFF UNKNOWN
     Route: 055
     Dates: end: 20120209
  4. BUDESONIDE [Concomitant]
  5. DIURETIC [Concomitant]

REACTIONS (3)
  - PNEUMONIA [None]
  - OXYGEN CONSUMPTION INCREASED [None]
  - DRUG ADMINISTRATION ERROR [None]
